FAERS Safety Report 7386726-9 (Version None)
Quarter: 2011Q1

REPORT INFORMATION
  Report Type: 
  Country: None (occurrence: None)
  Receive Date: 20110323
  Receipt Date: 20110314
  Transmission Date: 20110831
  Serious: Yes (Disabling, Other)
  Sender: FDA-Public Use
  Company Number: 2011PV000001

PATIENT
  Age: 53 Year
  Sex: Female

DRUGS (1)
  1. DEPOCYT (CYTARABINE) [Suspect]
     Indication: CHRONIC LYMPHOCYTIC LEUKAEMIA
     Dosage: 50 MG; 1X; INTH
     Dates: start: 20101112, end: 20101112

REACTIONS (2)
  - POSTERIOR REVERSIBLE ENCEPHALOPATHY SYNDROME [None]
  - BLINDNESS [None]
